FAERS Safety Report 21490788 (Version 1)
Quarter: 2022Q4

REPORT INFORMATION
  Report Type: Spontaneous
  Country: FR (occurrence: FR)
  Receive Date: 20221021
  Receipt Date: 20221021
  Transmission Date: 20230112
  Serious: Yes (Other)
  Sender: FDA-Public Use
  Company Number: FR-MICRO LABS LIMITED-ML2022-05247

PATIENT
  Age: 58 Year
  Sex: Male

DRUGS (2)
  1. AMOXICILLIN [Suspect]
     Active Substance: AMOXICILLIN
     Indication: Skin test
     Dosage: 1/10 DILUTION OF THE MAXIMUM DOSE
     Route: 023
  2. PENICILLIN G [Suspect]
     Active Substance: PENICILLIN G
     Indication: Skin test
     Dosage: 1/10 DILUTION OF THE MAXIMUM DOSE
     Route: 023

REACTIONS (2)
  - Angioedema [Recovered/Resolved]
  - Urticaria [Recovered/Resolved]
